FAERS Safety Report 21448393 (Version 1)
Quarter: 2022Q4

REPORT INFORMATION
  Report Type: Spontaneous
  Country: GB (occurrence: None)
  Receive Date: 20221013
  Receipt Date: 20221013
  Transmission Date: 20230112
  Serious: Yes (Other)
  Sender: FDA-Public Use
  Company Number: 2022A339039

PATIENT
  Age: 67 Year
  Sex: Male
  Weight: 84 kg

DRUGS (15)
  1. SAXAGLIPTIN [Suspect]
     Active Substance: SAXAGLIPTIN
     Route: 065
  2. ALENDRONIC ACID [Concomitant]
     Active Substance: ALENDRONIC ACID
  3. AZATHIOPRINE [Concomitant]
     Active Substance: AZATHIOPRINE
     Indication: Pemphigus
  4. BETAHISTINE [Concomitant]
     Active Substance: BETAHISTINE
  5. CLOPIDOGREL [Concomitant]
     Active Substance: CLOPIDOGREL BISULFATE
  6. DOXAZOSIN [Concomitant]
     Active Substance: DOXAZOSIN MESYLATE
  7. EMPAGLIFLOZIN [Concomitant]
     Active Substance: EMPAGLIFLOZIN
  8. GLICLAZIDE [Concomitant]
     Active Substance: GLICLAZIDE
  9. INSULIN HUMAN [Concomitant]
     Active Substance: INSULIN HUMAN
  10. LISINOPRIL [Concomitant]
     Active Substance: LISINOPRIL
  11. METFORMIN [Concomitant]
     Active Substance: METFORMIN HYDROCHLORIDE
  12. OMEPRAZOLE [Concomitant]
     Active Substance: OMEPRAZOLE
  13. PREDNISOLONE [Concomitant]
     Active Substance: PREDNISOLONE
  14. ROSUVASTATIN [Concomitant]
     Active Substance: ROSUVASTATIN
  15. TAMSULOSIN [Concomitant]
     Active Substance: TAMSULOSIN

REACTIONS (1)
  - Pemphigus [Not Recovered/Not Resolved]

NARRATIVE: CASE EVENT DATE: 20140822
